FAERS Safety Report 14662053 (Version 1)
Quarter: 2018Q1

REPORT INFORMATION
  Report Type: Report from Study
  Country: ES (occurrence: ES)
  Receive Date: 20180321
  Receipt Date: 20180321
  Transmission Date: 20180509
  Serious: Yes (Life-Threatening, Hospitalization)
  Sender: FDA-Public Use
  Company Number: ES-CONCORDIA PHARMACEUTICALS INC.-E2B_00010596

PATIENT
  Age: 75 Year
  Sex: Male

DRUGS (6)
  1. EUTIROX 100 MICROGRAMOS COMPRIMIDOS , 100 COMPRIMIDOS [Concomitant]
     Indication: HYPOTHYROIDISM
     Route: 048
  2. OMEPRAZOL (2141A) [Concomitant]
     Active Substance: OMEPRAZOLE
     Indication: PROPHYLAXIS AGAINST GASTROINTESTINAL ULCER
     Route: 048
  3. DIGOXIN. [Suspect]
     Active Substance: DIGOXIN
     Indication: ATRIAL FIBRILLATION
     Route: 048
     Dates: start: 201608
  4. RENVELA 2,4 G POLVO PARA SUSPENSION ORAL, 90 SOBRES [Concomitant]
     Indication: CHRONIC KIDNEY DISEASE
     Route: 048
     Dates: start: 201101
  5. FOSRENOL 500 MG COMPRIMIDOS MASTICABLES , 90 COMPRIMIDOS [Concomitant]
     Indication: CHRONIC KIDNEY DISEASE
     Route: 048
  6. TROMALYT 150, CAPSULAS DURAS DE LIBERACION PROLONGADA , 28 C?PSULAS [Concomitant]
     Indication: THROMBOSIS PROPHYLAXIS
     Route: 048

REACTIONS (3)
  - Medication error [Recovered/Resolved]
  - Hallucination, visual [Recovered/Resolved]
  - Toxicity to various agents [Recovered/Resolved]

NARRATIVE: CASE EVENT DATE: 201608
